FAERS Safety Report 10017222 (Version 1)
Quarter: 2014Q1

REPORT INFORMATION
  Report Type: Spontaneous
  Country: CH (occurrence: CH)
  Receive Date: 20140318
  Receipt Date: 20140318
  Transmission Date: 20141002
  Serious: Yes (Hospitalization)
  Sender: FDA-Public Use
  Company Number: PHHY2014CH031656

PATIENT
  Sex: Female

DRUGS (5)
  1. ACLASTA [Suspect]
     Indication: OSTEOPOROSIS
     Dosage: 5 MG, UNK
     Route: 042
  2. PANTOPRAZOLE [Concomitant]
     Dosage: 40 MG,DAILY
  3. PANTOPRAZOLE [Concomitant]
     Dosage: 40 MG, BID DAILY
  4. VITAMIN D3 [Concomitant]
     Dosage: UNK (20 DROPS,DAILY )
  5. CALCIUM [Concomitant]
     Dosage: UNK

REACTIONS (6)
  - Amylase increased [Recovered/Resolved]
  - Pancreatic duct dilatation [Unknown]
  - Hepatic cyst [Unknown]
  - Gastritis [Unknown]
  - Abdominal discomfort [Unknown]
  - Abdominal pain upper [Unknown]
